FAERS Safety Report 8598169-0 (Version None)
Quarter: 2012Q3

REPORT INFORMATION
  Report Type: 
  Country: None (occurrence: None)
  Receive Date: 20120816
  Receipt Date: 20120813
  Transmission Date: 20120928
  Serious: Yes (Hospitalization, Other)
  Sender: FDA-Public Use
  Company Number: PHHY2012ES069747

PATIENT
  Age: 53 Year
  Sex: Male

DRUGS (2)
  1. DEFERASIROX [Suspect]
     Indication: IRON OVERLOAD
     Dosage: 500 MG, DAILY
  2. DEFERASIROX [Suspect]
     Dosage: 1250 MG, DAILY
     Dates: start: 20120101

REACTIONS (6)
  - ASTHENIA [None]
  - BONE MARROW FAILURE [None]
  - PETECHIAE [None]
  - CONTUSION [None]
  - PANCYTOPENIA [None]
  - PYREXIA [None]
